FAERS Safety Report 8991287 (Version 1)
Quarter: 2012Q4

REPORT INFORMATION
  Report Type: 
  Country: VE (occurrence: VE)
  Receive Date: 20121231
  Receipt Date: 20121231
  Transmission Date: 20130627
  Serious: Yes (Other)
  Sender: FDA-Public Use
  Company Number: VE-AMGEN-VENSP2012076958

PATIENT
  Age: 54 Year
  Sex: Female

DRUGS (6)
  1. ENBREL [Suspect]
     Indication: PSORIASIS
     Dosage: 25 mg, 2 times/wk
     Route: 058
  2. VALSARTAN [Concomitant]
     Indication: HYPERTENSION
     Dosage: 80 mg, 1x/day
     Route: 048
  3. MANIDON [Concomitant]
     Indication: HYPERTENSION
     Dosage: 240 mg, 1x/day
     Route: 048
  4. LIPITOR [Concomitant]
     Indication: HYPERCHOLESTEROLAEMIA
     Dosage: 80 mg, 1x/day
     Route: 048
  5. CORASPIN [Concomitant]
     Indication: PLEURAL EFFUSION
     Dosage: 81 mg, 1x/day
     Route: 048
  6. BRUGESIC [Concomitant]
     Indication: PLEURAL EFFUSION
     Dosage: 400 mg, 1x/day
     Route: 048

REACTIONS (2)
  - Diverticulitis [Recovered/Resolved]
  - Colitis [Recovered/Resolved]
